FAERS Safety Report 18595014 (Version 1)
Quarter: 2020Q4

REPORT INFORMATION
  Report Type: Spontaneous
  Country: US (occurrence: US)
  Receive Date: 20201209
  Receipt Date: 20201209
  Transmission Date: 20210114
  Serious: No
  Sender: FDA-Public Use
  Company Number: US-TEVA-2020-US-1855710

PATIENT
  Age: 68 Year
  Sex: Female

DRUGS (14)
  1. AMANTADINE HCL [Concomitant]
     Active Substance: AMANTADINE HYDROCHLORIDE
  2. RESTORIL [Concomitant]
     Active Substance: TEMAZEPAM
  3. XANAX [Concomitant]
     Active Substance: ALPRAZOLAM
     Dosage: 0.25MG ONCE OR TWICE DAILY
  4. METFORMIN HYDROCHLORIDE. [Concomitant]
     Active Substance: METFORMIN HYDROCHLORIDE
  5. LORATADINE. [Concomitant]
     Active Substance: LORATADINE
  6. CITALOPRAM HYDROBROMIDE. [Concomitant]
     Active Substance: CITALOPRAM HYDROBROMIDE
  7. COPAXONE [Suspect]
     Active Substance: GLATIRAMER ACETATE
     Route: 065
     Dates: start: 202011
  8. POTASSIUM [Concomitant]
     Active Substance: POTASSIUM
     Dosage: ONCE A DAY
  9. ULTRAM [Concomitant]
     Active Substance: TRAMADOL HYDROCHLORIDE
     Dosage: 50MG PRN
  10. COPAXONE [Suspect]
     Active Substance: GLATIRAMER ACETATE
     Indication: MULTIPLE SCLEROSIS
     Route: 065
  11. OMEPRAZOLE. [Concomitant]
     Active Substance: OMEPRAZOLE
  12. OZEMPIC [Concomitant]
     Active Substance: SEMAGLUTIDE
  13. COPAXONE [Suspect]
     Active Substance: GLATIRAMER ACETATE
     Route: 065
     Dates: start: 2020
  14. LOVASTATIN. [Concomitant]
     Active Substance: LOVASTATIN

REACTIONS (10)
  - Feeling hot [Unknown]
  - Erythema [Unknown]
  - Vomiting [Unknown]
  - Bowel movement irregularity [Unknown]
  - Flushing [Unknown]
  - Discomfort [Unknown]
  - Asthenia [Unknown]
  - Presyncope [Unknown]
  - Hypopnoea [Unknown]
  - Heart rate increased [Unknown]

NARRATIVE: CASE EVENT DATE: 20201130
